FAERS Safety Report 22190662 (Version 4)
Quarter: 2023Q2

REPORT INFORMATION
  Report Type: Spontaneous
  Country: US (occurrence: US)
  Receive Date: 20230410
  Receipt Date: 20230512
  Transmission Date: 20230721
  Serious: No
  Sender: FDA-Public Use
  Company Number: US-002147023-NVSC2023US080725

PATIENT
  Sex: Female

DRUGS (2)
  1. FOCALIN [Suspect]
     Active Substance: DEXMETHYLPHENIDATE HYDROCHLORIDE
     Indication: Product used for unknown indication
     Dosage: 5 MG, TID (VIA MOUTH)
     Route: 048
     Dates: start: 20230301
  2. RITALIN [Concomitant]
     Active Substance: METHYLPHENIDATE HYDROCHLORIDE
     Indication: Attention deficit hyperactivity disorder
     Dosage: 20 MG (VIA MOUTH)
     Route: 048

REACTIONS (9)
  - General physical health deterioration [Unknown]
  - Muscle tightness [Unknown]
  - Jaw disorder [Unknown]
  - Hyperhidrosis [Unknown]
  - Asthenia [Unknown]
  - Withdrawal syndrome [Unknown]
  - Product dispensing error [Unknown]
  - Wrong technique in product usage process [Unknown]
  - Drug ineffective [Unknown]
